FAERS Safety Report 6517714-X (Version None)
Quarter: 2009Q4

REPORT INFORMATION
  Report Type: 
  Country: None (occurrence: None)
  Receive Date: 20091224
  Receipt Date: 20091215
  Transmission Date: 20100525
  Serious: Yes (Hospitalization)
  Sender: FDA-Public Use
  Company Number: JP-BRISTOL-MYERS SQUIBB COMPANY-14885131

PATIENT
  Age: 56 Year
  Sex: Female
  Weight: 48 kg

DRUGS (7)
  1. ERBITUX [Suspect]
     Indication: COLON CANCER
     Dosage: 575MG,12-12MAY09:350MG 26-26MAY09;03JUN09:SECOND COURSE; 320MG 24JUN-07JUL09
     Route: 042
     Dates: start: 20090512, end: 20090512
  2. IRINOTECAN HCL [Suspect]
     Indication: COLON CANCER
     Dosage: ON 03-JUN-2009:SECOND COURSE OF FOLFIRI
     Route: 042
     Dates: start: 20090526, end: 20090526
  3. FLUOROURACIL [Suspect]
     Indication: COLON CANCER
     Dosage: ALSO IV DRIP  FROM 26MAY-26MAY09 2700MG 1 IN 1D; 03JUN09:SECOND COURSE.
     Route: 040
     Dates: start: 20090526, end: 20090526
  4. LEUCOVORIN CALCIUM [Suspect]
     Indication: COLON CANCER
     Dosage: 03JUN09:SECOND COURSE.
     Route: 042
     Dates: start: 20090526, end: 20090526
  5. RADIATION THERAPY [Concomitant]
     Indication: COLON CANCER
     Dosage: 1DF- 30 GY
     Dates: start: 20090623, end: 20090707
  6. CHLOR-TRIMETON [Concomitant]
     Indication: PREMEDICATION
     Route: 042
     Dates: start: 20090512, end: 20090929
  7. DECADRON [Concomitant]
     Indication: PREMEDICATION
     Route: 042
     Dates: start: 20090512, end: 20090929

REACTIONS (1)
  - GASTRIC ULCER [None]
